FAERS Safety Report 21122507 (Version 2)
Quarter: 2022Q3

REPORT INFORMATION
  Report Type: Spontaneous
  Country: JP (occurrence: JP)
  Receive Date: 20220723
  Receipt Date: 20220802
  Transmission Date: 20221026
  Serious: Yes (Death, Other)
  Sender: FDA-Public Use
  Company Number: JP-AMGEN-JPNSP2022125183

PATIENT
  Age: 19 Year
  Sex: Male

DRUGS (2)
  1. BLINCYTO [Suspect]
     Active Substance: BLINATUMOMAB
     Indication: Product used for unknown indication
     Dosage: UNK
     Route: 041
  2. DASATINIB [Concomitant]
     Active Substance: DASATINIB
     Dosage: UNK
     Dates: start: 20200511

REACTIONS (2)
  - Multiple organ dysfunction syndrome [Fatal]
  - Sepsis [Fatal]

NARRATIVE: CASE EVENT DATE: 20211019
